FAERS Safety Report 9129844 (Version 3)
Quarter: 2013Q1

REPORT INFORMATION
  Report Type: Spontaneous
  Country: US (occurrence: US)
  Receive Date: 20130228
  Receipt Date: 20130319
  Transmission Date: 20140127
  Serious: Yes (Hospitalization)
  Sender: FDA-Public Use
  Company Number: US-GILEAD-2013-0070692

PATIENT
  Age: 80 Year
  Sex: Female

DRUGS (4)
  1. LETAIRIS [Suspect]
     Indication: PULMONARY HYPERTENSION
     Dosage: 10 MG, QD
     Route: 048
     Dates: start: 20110406
  2. LETAIRIS [Suspect]
     Indication: PULMONARY FIBROSIS
  3. TYVASO [Concomitant]
  4. ADCIRCA [Concomitant]

REACTIONS (1)
  - Myocardial infarction [Unknown]
